FAERS Safety Report 9653382 (Version 6)
Quarter: 2015Q2

REPORT INFORMATION
  Report Type: Spontaneous
  Country: US (occurrence: US)
  Receive Date: 20131029
  Receipt Date: 20150506
  Transmission Date: 20150821
  Serious: Yes (Hospitalization, Other)
  Sender: FDA-Public Use
  Company Number: US-009507513-1310USA010691

PATIENT
  Sex: Male
  Weight: 81.63 kg

DRUGS (3)
  1. FOSAMAX [Suspect]
     Active Substance: ALENDRONATE SODIUM
     Dosage: 70 MG, UNK
     Route: 048
     Dates: end: 200806
  2. FOSAMAX [Suspect]
     Active Substance: ALENDRONATE SODIUM
     Indication: OSTEOPOROSIS
     Dosage: UNK MG, UNK
     Route: 048
     Dates: start: 199703, end: 200806
  3. ALENDRONATE SODIUM. [Suspect]
     Active Substance: ALENDRONATE SODIUM
     Indication: OSTEOPOROSIS
     Dosage: 70 MG, QW
     Route: 048
     Dates: start: 200806, end: 201003

REACTIONS (50)
  - Device dislocation [Unknown]
  - Hip arthroplasty [Unknown]
  - Lentigo [Unknown]
  - Eye irritation [Unknown]
  - Cataract [Unknown]
  - Post procedural haemorrhage [Unknown]
  - Rib fracture [Unknown]
  - Headache [Unknown]
  - Femur fracture [Unknown]
  - Device dislocation [Unknown]
  - Tooth abscess [Unknown]
  - Arteriosclerosis [Unknown]
  - Scoliosis [Unknown]
  - Actinic keratosis [Unknown]
  - Back pain [Not Recovered/Not Resolved]
  - Bone cyst [Unknown]
  - Oedema peripheral [Unknown]
  - Radiculitis lumbosacral [Unknown]
  - Chronic gastritis [Not Recovered/Not Resolved]
  - Tooth fracture [Unknown]
  - Osteoarthritis [Unknown]
  - Winged scapula [Unknown]
  - Anaemia postoperative [Unknown]
  - Abdominal pain [Unknown]
  - Hyperlipidaemia [Unknown]
  - Lymphadenopathy [Recovering/Resolving]
  - Polyarthritis [Unknown]
  - Foot deformity [Unknown]
  - Hypogonadism [Unknown]
  - Upper respiratory tract infection [Unknown]
  - Anaemia postoperative [Unknown]
  - Urinary tract infection [Unknown]
  - Alpha haemolytic streptococcal infection [Unknown]
  - Gastrooesophageal reflux disease [Unknown]
  - Surgery [Unknown]
  - Intervertebral disc degeneration [Unknown]
  - Major depression [Unknown]
  - Fatigue [Unknown]
  - Muscle spasms [Unknown]
  - Abdominal discomfort [Unknown]
  - Hip arthroplasty [Unknown]
  - Essential hypertension [Unknown]
  - Intervertebral disc protrusion [Unknown]
  - Diverticulum intestinal [Unknown]
  - Spinal osteoarthritis [Unknown]
  - Limb asymmetry [Recovered/Resolved]
  - Peptic ulcer [Unknown]
  - Foreign body in eye [Unknown]
  - Sleep disorder [Unknown]
  - Feeling abnormal [Unknown]

NARRATIVE: CASE EVENT DATE: 1997
